FAERS Safety Report 21780693 (Version 1)
Quarter: 2022Q4

REPORT INFORMATION
  Report Type: Spontaneous
  Country: KR (occurrence: KR)
  Receive Date: 20221227
  Receipt Date: 20221227
  Transmission Date: 20230113
  Serious: Yes (Other)
  Sender: FDA-Public Use
  Company Number: KR-CELLTRION INC.-2022KR015297

PATIENT

DRUGS (7)
  1. INFLIXIMAB [Suspect]
     Active Substance: INFLIXIMAB
     Indication: Crohn^s disease
     Dosage: 120 MG
     Route: 058
     Dates: start: 20220623
  2. INFLIXIMAB [Suspect]
     Active Substance: INFLIXIMAB
     Dosage: 120 MG
     Route: 058
     Dates: start: 20220915
  3. DEXIBU [Concomitant]
     Dosage: 400 MG, TID
     Dates: start: 20221219
  4. TAGAMET [Concomitant]
     Active Substance: CIMETIDINE
     Dosage: 200 MG, TID
     Dates: start: 20221219
  5. BEARSTA [Concomitant]
     Dosage: 1 TAB, TID
     Dates: start: 20221219
  6. HERBALS [Concomitant]
     Active Substance: HERBALS
     Dosage: 1 TAB, TID
     Dates: start: 20221219
  7. PAXLOVID [Concomitant]
     Active Substance: NIRMATRELVIR\RITONAVIR
     Dosage: 3 TAB, BID
     Dates: start: 20221219

REACTIONS (2)
  - COVID-19 [Not Recovered/Not Resolved]
  - Incorrect dose administered [Recovered/Resolved]

NARRATIVE: CASE EVENT DATE: 20220915
